FAERS Safety Report 11702279 (Version 1)
Quarter: 2015Q4

REPORT INFORMATION
  Report Type: Spontaneous
  Country: CA (occurrence: CA)
  Receive Date: 20151105
  Receipt Date: 20151105
  Transmission Date: 20160304
  Serious: Yes (Hospitalization)
  Sender: FDA-Public Use
  Company Number: CA-TEVA-605717ACC

PATIENT
  Age: 38 Year
  Sex: Female
  Weight: 59 kg

DRUGS (1)
  1. CITALOPRAM [Suspect]
     Active Substance: CITALOPRAM HYDROBROMIDE
     Indication: TACHYCARDIA
     Dosage: 10 MILLIGRAM DAILY;
     Route: 048

REACTIONS (5)
  - Insomnia [Recovered/Resolved]
  - Restlessness [Recovered/Resolved]
  - Heart rate irregular [Recovered/Resolved]
  - Arrhythmia [Recovered/Resolved]
  - Blood pressure fluctuation [Recovered/Resolved]
